FAERS Safety Report 15679313 (Version 1)
Quarter: 2018Q4

REPORT INFORMATION
  Report Type: Spontaneous
  Country: SE (occurrence: SE)
  Receive Date: 20181203
  Receipt Date: 20181203
  Transmission Date: 20190205
  Serious: Yes (Other)
  Sender: FDA-Public Use
  Company Number: SE-TEVA-2018-SE-981062

PATIENT
  Age: 58 Year
  Sex: Male

DRUGS (3)
  1. FEVARIN [Interacting]
     Active Substance: FLUVOXAMINE MALEATE
     Dosage: 50 MILLIGRAM DAILY;
     Route: 048
     Dates: start: 20180525, end: 20180821
  2. CLOZAPINE. [Suspect]
     Active Substance: CLOZAPINE
     Dosage: 200 MILLIGRAM DAILY;
     Route: 048
     Dates: start: 20161027
  3. TEGRETOL [Interacting]
     Active Substance: CARBAMAZEPINE
     Dosage: 400 MILLIGRAM DAILY;
     Route: 048
     Dates: start: 20170823, end: 20180524

REACTIONS (2)
  - Drug interaction [Recovered/Resolved]
  - Toxicity to various agents [Recovered/Resolved]

NARRATIVE: CASE EVENT DATE: 20180729
